FAERS Safety Report 24935608 (Version 1)
Quarter: 2025Q1

REPORT INFORMATION
  Report Type: Report from Study
  Country: US (occurrence: US)
  Receive Date: 20250206
  Receipt Date: 20250206
  Transmission Date: 20250409
  Serious: Yes (Death, Hospitalization)
  Sender: EXELIXIS
  Company Number: US-EXELIXIS-CABO-24079578

PATIENT
  Sex: Male
  Weight: 86.168 kg

DRUGS (4)
  1. CABOMETYX [Suspect]
     Active Substance: CABOZANTINIB S-MALATE
     Indication: Hepatocellular carcinoma
     Dosage: 60 MG, QD
     Route: 048
     Dates: start: 20240601
  2. CABOMETYX [Suspect]
     Active Substance: CABOZANTINIB S-MALATE
     Indication: Metastases to lung
  3. FAMOTIDINE [Concomitant]
     Active Substance: FAMOTIDINE
  4. IBUPROFEN [Concomitant]
     Active Substance: IBUPROFEN

REACTIONS (2)
  - Malignant neoplasm progression [Fatal]
  - Cellulitis [Unknown]
